FAERS Safety Report 5515969-1 (Version None)
Quarter: 2007Q4

REPORT INFORMATION
  Report Type: 
  Country: None (occurrence: None)
  Receive Date: 20071114
  Receipt Date: 20061102
  Transmission Date: 20080405
  Serious: No
  Sender: FDA-Public Use
  Company Number: A0625803A

PATIENT
  Age: 70 Year
  Sex: Female

DRUGS (3)
  1. COMMIT [Suspect]
     Dates: start: 20061031, end: 20061031
  2. ATENOLOL [Concomitant]
  3. LORATADINE [Concomitant]

REACTIONS (4)
  - DRY MOUTH [None]
  - NICOTINE DEPENDENCE [None]
  - RHINORRHOEA [None]
  - SNEEZING [None]
